FAERS Safety Report 22526926 (Version 4)
Quarter: 2023Q4

REPORT INFORMATION
  Report Type: Report from Study
  Country: AR (occurrence: AR)
  Receive Date: 20230606
  Receipt Date: 20231009
  Transmission Date: 20240110
  Serious: Yes (Other)
  Sender: FDA-Public Use
  Company Number: AR-002147023-NVSC2023AR126688

PATIENT
  Age: 45 Year
  Sex: Female

DRUGS (2)
  1. COSENTYX [Suspect]
     Active Substance: SECUKINUMAB
     Indication: Axial spondyloarthritis
     Dosage: 300 MG
     Route: 065
     Dates: start: 20220428
  2. METHOTREXATE [Suspect]
     Active Substance: METHOTREXATE
     Indication: Product used for unknown indication
     Dosage: UNK
     Route: 065

REACTIONS (9)
  - Liver injury [Unknown]
  - Hepatic failure [Unknown]
  - Fibromyalgia [Unknown]
  - Spinal pain [Unknown]
  - Back pain [Unknown]
  - Neck pain [Unknown]
  - Arthralgia [Unknown]
  - Cardiac murmur [Unknown]
  - Axial spondyloarthritis [Unknown]

NARRATIVE: CASE EVENT DATE: 20230101
